FAERS Safety Report 25377246 (Version 1)
Quarter: 2025Q2

REPORT INFORMATION
  Report Type: Report from Study
  Country: IN (occurrence: IN)
  Receive Date: 20250530
  Receipt Date: 20250530
  Transmission Date: 20250717
  Serious: Yes (Hospitalization)
  Sender: ROCHE
  Company Number: IN-ROCHE-10000297147

PATIENT
  Age: 46 Year
  Sex: Male

DRUGS (7)
  1. CELLCEPT [Suspect]
     Active Substance: MYCOPHENOLATE MOFETIL
     Indication: Renal transplant
     Route: 048
     Dates: start: 20211112, end: 20250207
  2. TACROLIMUS [Concomitant]
     Active Substance: TACROLIMUS
  3. PREDNISOLONE [Concomitant]
     Active Substance: PREDNISOLONE
  4. NIFEDIPINE [Concomitant]
     Active Substance: NIFEDIPINE
  5. MINIPRESS [Concomitant]
     Active Substance: PRAZOSIN HYDROCHLORIDE
  6. telvAS [Concomitant]
  7. PROCEPT [Concomitant]

REACTIONS (2)
  - IgA nephropathy [Unknown]
  - Gastric infection [Recovered/Resolved]

NARRATIVE: CASE EVENT DATE: 20241229
